FAERS Safety Report 13021389 (Version 1)
Quarter: 2016Q4

REPORT INFORMATION
  Report Type: Report from Study
  Country: US (occurrence: US)
  Receive Date: 20161213
  Receipt Date: 20161213
  Transmission Date: 20170207
  Serious: Yes (Hospitalization)
  Sender: FDA-Public Use
  Company Number: US-ASTRAZENECA-2016SF18650

PATIENT
  Sex: Female

DRUGS (1)
  1. LYNPARZA [Suspect]
     Active Substance: OLAPARIB
     Indication: OVARIAN CANCER
     Route: 048
     Dates: start: 20161026, end: 20161102

REACTIONS (4)
  - Diarrhoea [Recovering/Resolving]
  - Blood glucose decreased [Recovering/Resolving]
  - Renal failure [Not Recovered/Not Resolved]
  - Dehydration [Unknown]
